FAERS Safety Report 13189395 (Version 1)
Quarter: 2017Q1

REPORT INFORMATION
  Report Type: Spontaneous
  Country: US (occurrence: US)
  Receive Date: 20170204
  Receipt Date: 20170204
  Transmission Date: 20170428
  Serious: Yes (Hospitalization)
  Sender: FDA-Public Use
  Company Number: None

PATIENT
  Age: 50 Year
  Sex: Female
  Weight: 78.6 kg

DRUGS (3)
  1. CYCLOPHOSPHAMIDE. [Suspect]
     Active Substance: CYCLOPHOSPHAMIDE
     Dates: end: 20161031
  2. DOXORUBICIN HYDROCHLORIDE. [Suspect]
     Active Substance: DOXORUBICIN HYDROCHLORIDE
     Dates: end: 20161031
  3. TAXOL [Suspect]
     Active Substance: PACLITAXEL
     Dates: end: 20170123

REACTIONS (4)
  - Cough [None]
  - Body temperature increased [None]
  - Anaemia [None]
  - Viral infection [None]

NARRATIVE: CASE EVENT DATE: 20170125
